FAERS Safety Report 12095066 (Version 1)
Quarter: 2016Q1

REPORT INFORMATION
  Report Type: Spontaneous
  Country: SE (occurrence: SE)
  Receive Date: 20160219
  Receipt Date: 20160219
  Transmission Date: 20160526
  Serious: No
  Sender: FDA-Public Use
  Company Number: SE-PERNIX THERAPEUTICS-2015PT000294

PATIENT

DRUGS (3)
  1. OMEPRAZOLE. [Concomitant]
     Active Substance: OMEPRAZOLE
     Dosage: 20 MG, UNK
  2. CEDAX [Suspect]
     Active Substance: CEFTIBUTEN DIHYDRATE
     Indication: INFECTION
     Dosage: UNK, INTRAVENEOUS
     Dates: start: 201510, end: 20151025
  3. CEDAX [Suspect]
     Active Substance: CEFTIBUTEN DIHYDRATE
     Indication: INFECTION
     Dosage: 1 CAPSULE OCE DAILY
     Route: 048
     Dates: start: 20151026

REACTIONS (3)
  - Paraesthesia [Not Recovered/Not Resolved]
  - Dizziness [Not Recovered/Not Resolved]
  - Fatigue [Not Recovered/Not Resolved]

NARRATIVE: CASE EVENT DATE: 201510
